FAERS Safety Report 17815562 (Version 1)
Quarter: 2020Q2

REPORT INFORMATION
  Report Type: Spontaneous
  Country: US (occurrence: US)
  Receive Date: 20200521
  Receipt Date: 20200521
  Transmission Date: 20200714
  Serious: Yes (Hospitalization)
  Sender: FDA-Public Use
  Company Number: None

PATIENT
  Sex: Female

DRUGS (8)
  1. AVAPRO [Concomitant]
     Active Substance: IRBESARTAN
  2. CALCIUM /VIT D [Concomitant]
  3. NORVASC [Concomitant]
     Active Substance: AMLODIPINE BESYLATE
  4. SYNTHROID [Concomitant]
     Active Substance: LEVOTHYROXINE SODIUM
  5. SPRYCEL [Suspect]
     Active Substance: DASATINIB
     Indication: PRODUCT USED FOR UNKNOWN INDICATION
     Route: 048
     Dates: start: 20200503
  6. MAGNESIUM [Concomitant]
     Active Substance: MAGNESIUM
  7. EXEMESTANE. [Concomitant]
     Active Substance: EXEMESTANE
  8. METOPROLOL SUC [Concomitant]

REACTIONS (3)
  - Pneumonia [None]
  - Diarrhoea [None]
  - Rash [None]
